FAERS Safety Report 9944000 (Version 1)
Quarter: 2014Q1

REPORT INFORMATION
  Report Type: Report from Study
  Country: US (occurrence: US)
  Receive Date: 20140303
  Receipt Date: 20140303
  Transmission Date: 20141002
  Serious: Yes (Hospitalization, Other)
  Sender: FDA-Public Use
  Company Number: US-BAXTER-2014BAX009614

PATIENT
  Age: 26 Year
  Sex: Female
  Weight: 99.5 kg

DRUGS (3)
  1. GAMMAGARD LIQUID [Suspect]
     Indication: IMMUNODEFICIENCY COMMON VARIABLE
     Route: 042
     Dates: start: 2005
  2. GAMMAGARD LIQUID [Suspect]
     Indication: HYPOGAMMAGLOBULINAEMIA
  3. METHOTREXATE [Concomitant]
     Indication: CROHN^S DISEASE
     Dates: start: 2010

REACTIONS (2)
  - Gastritis [Recovered/Resolved with Sequelae]
  - Cardiac arrest [Recovered/Resolved]
